FAERS Safety Report 5604205-3 (Version None)
Quarter: 2008Q1

REPORT INFORMATION
  Report Type: 
  Country: None (occurrence: None)
  Receive Date: 20080128
  Receipt Date: 20080118
  Transmission Date: 20080703
  Serious: Yes (Hospitalization, Other)
  Sender: FDA-Public Use
  Company Number: FR-NOVOPROD-270187

PATIENT
  Age: 62 Year
  Sex: Female
  Weight: 47 kg

DRUGS (8)
  1. NORDITROPIN [Suspect]
     Indication: GROWTH HORMONE DEFICIENCY
     Dosage: .1 MG, QD
     Dates: start: 20070901, end: 20071001
  2. NORDITROPIN [Suspect]
     Dosage: .2 MG, QD
     Dates: start: 20071001, end: 20071001
  3. NORDITROPIN [Suspect]
     Dosage: .3 MG, QD
     Dates: start: 20071001, end: 20071101
  4. NORDITROPIN [Suspect]
     Dosage: .2 MG, QD
     Dates: start: 20071101, end: 20071130
  5. LEVOTHYROX [Concomitant]
     Dosage: 75 UG, QD
     Dates: start: 20060201
  6. KARDEGIC                           /00002703/ [Concomitant]
     Dates: start: 20010101
  7. FOSAMAX [Concomitant]
     Dates: start: 20050101
  8. IDEOS                              /00108001/ [Concomitant]
     Dosage: UNK, UNK
     Dates: start: 20050101

REACTIONS (1)
  - BREAST CANCER [None]
